FAERS Safety Report 5638057-2 (Version None)
Quarter: 2008Q1

REPORT INFORMATION
  Report Type: 
  Country: None (occurrence: None)
  Receive Date: 20080222
  Receipt Date: 20080222
  Transmission Date: 20080703
  Serious: No
  Sender: FDA-Public Use
  Company Number: None

PATIENT
  Age: 56 Year
  Sex: Female
  Weight: 55.7924 kg

DRUGS (2)
  1. LEVAQUIN [Suspect]
     Indication: CHRONIC OBSTRUCTIVE PULMONARY DISEASE
     Dates: start: 20071019, end: 20071029
  2. LEVAQUIN [Suspect]
     Indication: PNEUMONIA
     Dates: start: 20071019, end: 20071029

REACTIONS (1)
  - TENDON RUPTURE [None]
